FAERS Safety Report 9877719 (Version 1)
Quarter: 2014Q1

REPORT INFORMATION
  Report Type: Spontaneous
  Country: US (occurrence: None)
  Receive Date: 20140204
  Receipt Date: 20140204
  Transmission Date: 20141002
  Serious: Yes (Other)
  Sender: FDA-Public Use
  Company Number: AUR-APL-2014-01036

PATIENT
  Age: 74 Year
  Sex: Female

DRUGS (3)
  1. GABAPENTIN [Suspect]
     Indication: NEUROPATHY PERIPHERAL
     Dosage: 900MG (300 MG, 3 IN 1 D), ORAL
     Route: 048
  2. NIFEDIPINE [Concomitant]
  3. CARVEDILOL [Concomitant]

REACTIONS (1)
  - Systemic lupus erythematosus [None]
